FAERS Safety Report 5981855-6 (Version None)
Quarter: 2008Q4

REPORT INFORMATION
  Report Type: 
  Country: None (occurrence: None)
  Receive Date: 20081202
  Receipt Date: 20081118
  Transmission Date: 20090506
  Serious: Yes (Hospitalization)
  Sender: FDA-Public Use
  Company Number: KV200800329

PATIENT
  Age: 52 Year
  Sex: Female
  Weight: 42.6 kg

DRUGS (4)
  1. MORPHINE SULFATE       () SLOW RELEASE [Suspect]
     Indication: BACK PAIN
     Dosage: 30 MG, ONCE TABLET EVERY OTHER DAY, ORAL
     Route: 048
     Dates: start: 20070101, end: 20080701
  2. MORPHINE SULFATE       () SLOW RELEASE [Suspect]
     Indication: NECK PAIN
     Dosage: 30 MG, ONCE TABLET EVERY OTHER DAY, ORAL
     Route: 048
     Dates: start: 20070101, end: 20080701
  3. PERCOCET /00446701/ (OXYCODONE HYDROCHLORIDE, OXYCODONE TEREPHTAHALATE [Concomitant]
  4. LEXPRO (ESCITALOPRAM OXALATE) [Concomitant]

REACTIONS (9)
  - ACCIDENTAL OVERDOSE [None]
  - AMNESIA [None]
  - CONDITION AGGRAVATED [None]
  - DEPRESSION [None]
  - IRRITABILITY [None]
  - LOSS OF CONSCIOUSNESS [None]
  - MOOD ALTERED [None]
  - PRODUCT QUALITY ISSUE [None]
  - RESPIRATORY FAILURE [None]
